FAERS Safety Report 4576171-3 (Version None)
Quarter: 2005Q1

REPORT INFORMATION
  Report Type: 
  Country: None (occurrence: None)
  Receive Date: 20050204
  Receipt Date: 20050127
  Transmission Date: 20050727
  Serious: Yes (Hospitalization)
  Sender: FDA-Public Use
  Company Number: 2004PK02118

PATIENT
  Age: 38 Year
  Sex: Male
  Weight: 85 kg

DRUGS (8)
  1. ROSUVASTATIN [Suspect]
     Indication: HYPERCHOLESTEROLAEMIA
     Dosage: 10 MG QD PO
     Route: 048
     Dates: start: 20030228, end: 20030513
  2. ROSUVASTATIN [Suspect]
     Indication: HYPERCHOLESTEROLAEMIA
     Dosage: 20 MG DAILY PO
     Route: 048
     Dates: start: 20030513, end: 20030812
  3. ROSUVASTATIN [Suspect]
     Indication: HYPERCHOLESTEROLAEMIA
     Dosage: 40 MG DAILY PO
     Route: 048
     Dates: start: 20030813, end: 20040201
  4. ROSUVASTATIN [Suspect]
     Indication: HYPERCHOLESTEROLAEMIA
     Dosage: 40 MG DAILY PO
     Route: 048
     Dates: start: 20040201, end: 20041202
  5. SURMONTIL [Concomitant]
  6. TEGRETOL [Concomitant]
  7. ASPIRIN [Concomitant]
  8. EZETROL [Concomitant]

REACTIONS (12)
  - ABDOMINAL PAIN LOWER [None]
  - ARTERIAL OCCLUSIVE DISEASE [None]
  - BIOPSY LYMPH GLAND ABNORMAL [None]
  - HYPERHOMOCYSTEINAEMIA [None]
  - INFLAMMATION [None]
  - MYOPATHY [None]
  - PERIPHERAL OCCLUSIVE DISEASE [None]
  - PYREXIA [None]
  - RETROPERITONEAL FIBROSIS [None]
  - TAKAYASU'S ARTERITIS [None]
  - THROMBOANGIITIS OBLITERANS [None]
  - VASCULAR PROCEDURE COMPLICATION [None]
